FAERS Safety Report 23149357 (Version 5)
Quarter: 2023Q4

REPORT INFORMATION
  Report Type: Other
  Country: PT (occurrence: PT)
  Receive Date: 20231106
  Receipt Date: 20231128
  Transmission Date: 20240109
  Serious: Yes (Death, Other)
  Sender: FDA-Public Use
  Company Number: PT-GLAXOSMITHKLINE-PT2022017931

PATIENT

DRUGS (91)
  1. DUTASTERIDE [Suspect]
     Active Substance: DUTASTERIDE
     Route: 065
  2. XYZAL [Suspect]
     Active Substance: LEVOCETIRIZINE DIHYDROCHLORIDE
     Dosage: 5 MG
     Route: 065
  3. DONEPEZIL [Suspect]
     Active Substance: DONEPEZIL
     Route: 065
  4. AGOMELATINE [Suspect]
     Active Substance: AGOMELATINE
     Route: 065
  5. GINKGO [Suspect]
     Active Substance: GINKGO
     Route: 065
  6. NITROGLYCERIN [Suspect]
     Active Substance: NITROGLYCERIN
     Route: 065
  7. PRAVASTATIN SODIUM [Suspect]
     Active Substance: PRAVASTATIN SODIUM
     Route: 065
  8. ACETAMINOPHEN [Suspect]
     Active Substance: ACETAMINOPHEN
     Route: 065
  9. ALISKIREN [Suspect]
     Active Substance: ALISKIREN
     Route: 065
  10. HYDROCHLOROTHIAZIDE [Suspect]
     Active Substance: HYDROCHLOROTHIAZIDE
     Route: 065
  11. CELECOXIB [Suspect]
     Active Substance: CELECOXIB
     Dosage: 100 MG
     Route: 065
  12. MOTILIUM [Suspect]
     Active Substance: DOMPERIDONE
     Route: 065
  13. SOFOSBUVIR [Suspect]
     Active Substance: SOFOSBUVIR
     Route: 065
  14. ZOLEDRONIC ACID [Suspect]
     Active Substance: ZOLEDRONIC ACID
     Route: 065
  15. TRAMADOL HYDROCHLORIDE [Suspect]
     Active Substance: TRAMADOL HYDROCHLORIDE
  16. BISOPROLOL FUMARATE [Suspect]
     Active Substance: BISOPROLOL FUMARATE
     Dosage: 25 MG
     Route: 065
  17. PROPRANOLOL [Suspect]
     Active Substance: PROPRANOLOL HYDROCHLORIDE
     Route: 065
  18. IMATINIB [Suspect]
     Active Substance: IMATINIB
     Route: 065
  19. VERAPAMIL HYDROCHLORIDE [Suspect]
     Active Substance: VERAPAMIL HYDROCHLORIDE
     Dosage: 120 MG
     Route: 065
  20. GLUCOSAMINE [Suspect]
     Active Substance: GLUCOSAMINE
     Dosage: 1500 MG
     Route: 065
  21. CODEINE [Suspect]
     Active Substance: CODEINE
     Route: 065
  22. ESOMEPRAZOLE [Suspect]
     Active Substance: ESOMEPRAZOLE
     Route: 065
  23. MIRTAZAPINE [Suspect]
     Active Substance: MIRTAZAPINE
     Route: 048
  24. ESCHERICHIA COLI [Suspect]
     Active Substance: ESCHERICHIA COLI
     Route: 065
  25. VENLAFAXINE HYDROCHLORIDE [Suspect]
     Active Substance: VENLAFAXINE HYDROCHLORIDE
     Dosage: 100 MG
     Route: 065
  26. LEDIPASVIR [Suspect]
     Active Substance: LEDIPASVIR
     Route: 065
  27. SERTRALINE HYDROCHLORIDE [Suspect]
     Active Substance: SERTRALINE HYDROCHLORIDE
     Route: 065
  28. TOCILIZUMAB [Suspect]
     Active Substance: TOCILIZUMAB
     Route: 065
  29. ADALIMUMAB [Suspect]
     Active Substance: ADALIMUMAB\ISOPROPYL ALCOHOL
     Dosage: 35 G
     Route: 065
  30. ESCITALOPRAM OXALATE [Suspect]
     Active Substance: ESCITALOPRAM OXALATE
     Dosage: 5 MG
     Route: 048
  31. INDOMETHACIN [Suspect]
     Active Substance: INDOMETHACIN
     Dosage: 100 MG
  32. EZETIMIBE [Suspect]
     Active Substance: EZETIMIBE
     Dosage: TABLET
     Route: 048
  33. ATORVASTATIN CALCIUM [Suspect]
     Active Substance: ATORVASTATIN CALCIUM
     Route: 065
  34. RIBAVIRIN [Suspect]
     Active Substance: RIBAVIRIN
     Dosage: 5 MG
     Route: 065
  35. NILOTINIB [Suspect]
     Active Substance: NILOTINIB
     Route: 065
  36. IBANDRONIC ACID [Suspect]
     Active Substance: IBANDRONIC ACID
     Route: 065
  37. ETANERCEPT [Suspect]
     Active Substance: ETANERCEPT
     Indication: Blood pressure measurement
     Route: 065
  38. MYCOPHENOLIC ACID [Suspect]
     Active Substance: MYCOPHENOLIC ACID
     Route: 065
  39. ASPIRIN [Suspect]
     Active Substance: ASPIRIN
  40. ALENDRONIC ACID [Suspect]
     Active Substance: ALENDRONIC ACID
  41. ENOXAPARIN SODIUM [Suspect]
     Active Substance: ENOXAPARIN SODIUM
     Route: 065
  42. DILTIAZEM HYDROCHLORIDE [Suspect]
     Active Substance: DILTIAZEM HYDROCHLORIDE
     Dosage: 120 MG
     Route: 065
  43. HYDROMORPHONE HYDROCHLORIDE [Suspect]
     Active Substance: HYDROMORPHONE HYDROCHLORIDE
     Route: 048
  44. DOCETAXEL [Suspect]
     Active Substance: DOCETAXEL\DOCETAXEL ANHYDROUS
     Dosage: 100 MG
     Route: 065
  45. ANASTROZOLE [Suspect]
     Active Substance: ANASTROZOLE
     Route: 065
  46. ACECLOFENAC [Suspect]
     Active Substance: ACECLOFENAC
     Dosage: 100 MG
     Route: 065
  47. SODIUM PICOSULFATE [Suspect]
     Active Substance: SODIUM PICOSULFATE
     Dosage: 35G
     Route: 062
  48. CILAZAPRIL ANHYDROUS [Suspect]
     Active Substance: CILAZAPRIL ANHYDROUS
     Route: 065
  49. SIMVASTATIN [Suspect]
     Active Substance: SIMVASTATIN
     Route: 048
  50. NIMESULIDE [Suspect]
     Active Substance: NIMESULIDE
     Route: 065
  51. PITAVASTATIN [Suspect]
     Active Substance: PITAVASTATIN
     Route: 065
  52. FENOFIBRATE [Suspect]
     Active Substance: FENOFIBRATE
     Dosage: 100 MG
     Route: 065
  53. LETROZOLE [Suspect]
     Active Substance: LETROZOLE
     Route: 065
  54. EXEMESTANE [Suspect]
     Active Substance: EXEMESTANE
     Dosage: 35 G
     Route: 065
  55. TELMISARTAN [Suspect]
     Active Substance: TELMISARTAN
     Route: 065
  56. CHOLECALCIFEROL [Suspect]
     Active Substance: CHOLECALCIFEROL
     Route: 065
  57. FLUVASTATIN [Suspect]
     Active Substance: FLUVASTATIN SODIUM
     Route: 065
  58. FLUOXETINE HYDROCHLORIDE [Suspect]
     Active Substance: FLUOXETINE HYDROCHLORIDE
     Route: 065
  59. HUMAN RABIES VIRUS IMMUNE GLOBULIN [Suspect]
     Active Substance: HUMAN RABIES VIRUS IMMUNE GLOBULIN
  60. HUMAN IMMUNOGLOBULIN G [Suspect]
     Active Substance: HUMAN IMMUNOGLOBULIN G
     Dosage: 50 MG
     Route: 065
  61. TAMSULOSIN HYDROCHLORIDE [Suspect]
     Active Substance: TAMSULOSIN HYDROCHLORIDE
     Route: 062
  62. CODEINE PHOSPHATE [Suspect]
     Active Substance: CODEINE PHOSPHATE
     Route: 065
  63. PENTAZOCINE [Suspect]
     Active Substance: PENTAZOCINE
     Dosage: 100 MG
     Route: 065
  64. CODEINE SULFATE [Suspect]
     Active Substance: CODEINE SULFATE
     Route: 065
  65. CODEINE [Suspect]
     Active Substance: CODEINE
     Route: 065
  66. VORTIOXETINE [Suspect]
     Active Substance: VORTIOXETINE
     Route: 065
  67. POTASSIUM IODIDE [Suspect]
     Active Substance: POTASSIUM IODIDE
     Route: 065
  68. PREGABALIN [Suspect]
     Active Substance: PREGABALIN
     Route: 065
  69. BUPRENORPHINE [Suspect]
     Active Substance: BUPRENORPHINE
  70. BRINZOLAMIDE [Suspect]
     Active Substance: BRINZOLAMIDE
     Dosage: 120 MG
     Route: 047
  71. PENTOXIFYLLINE [Suspect]
     Active Substance: PENTOXIFYLLINE
     Route: 065
  72. NORFLOXACIN [Suspect]
     Active Substance: NORFLOXACIN
     Route: 065
  73. MYCOPHENOLATE MOFETIL [Suspect]
     Active Substance: MYCOPHENOLATE MOFETIL
     Route: 065
  74. VENLAFAXINE [Suspect]
     Active Substance: VENLAFAXINE HYDROCHLORIDE
     Route: 065
  75. BISOPROLOL [Suspect]
     Active Substance: BISOPROLOL\BISOPROLOL FUMARATE
     Dosage: 2.5 MG
     Route: 065
  76. HYDROMORPHONE [Suspect]
     Active Substance: HYDROMORPHONE
     Route: 065
  77. NITROGLYCERIN [Suspect]
     Active Substance: NITROGLYCERIN
     Route: 065
  78. DILTIAZEM [Suspect]
     Active Substance: DILTIAZEM
     Dosage: 120 MG
     Route: 065
  79. VERAPAMIL [Suspect]
     Active Substance: VERAPAMIL HYDROCHLORIDE
     Dosage: 120 MG
     Route: 065
  80. IODINE [Suspect]
     Active Substance: IODINE
     Route: 065
  81. NITROGLYCERIN [Suspect]
     Active Substance: NITROGLYCERIN
     Route: 065
  82. INDOMETHACIN [Suspect]
     Active Substance: INDOMETHACIN
     Route: 047
  83. DOMPERIDONE [Suspect]
     Active Substance: DOMPERIDONE
     Route: 065
  84. PRAVASTATIN [Suspect]
     Active Substance: PRAVASTATIN
     Route: 065
  85. ESCITALOPRAM [Suspect]
     Active Substance: ESCITALOPRAM OXALATE
     Dosage: 5 MG
     Route: 048
  86. SERTRALINE HYDROCHLORIDE [Suspect]
     Active Substance: SERTRALINE HYDROCHLORIDE
     Route: 048
  87. ESCHERICHIA COLI [Suspect]
     Active Substance: ESCHERICHIA COLI
     Route: 065
  88. ALENDRONATE SODIUM [Suspect]
     Active Substance: ALENDRONATE SODIUM
     Route: 065
  89. IMATINIB MESYLATE [Suspect]
     Active Substance: IMATINIB MESYLATE
     Route: 065
  90. TRAMADOL [Suspect]
     Active Substance: TRAMADOL\TRAMADOL HYDROCHLORIDE
     Route: 062
  91. DONEPEZIL HYDROCHLORIDE [Suspect]
     Active Substance: DONEPEZIL HYDROCHLORIDE
     Dosage: 5 MG
     Route: 048

REACTIONS (46)
  - Sepsis [Fatal]
  - Headache [Fatal]
  - Cardio-respiratory arrest [Fatal]
  - Haemorrhagic stroke [Fatal]
  - Altered state of consciousness [Fatal]
  - Malaise [Fatal]
  - Cough [Fatal]
  - Haematuria [Fatal]
  - Fall [Fatal]
  - Vision blurred [Fatal]
  - Urinary tract disorder [Fatal]
  - Tachycardia [Fatal]
  - Diarrhoea [Fatal]
  - Dizziness [Fatal]
  - Syncope [Fatal]
  - Photophobia [Fatal]
  - Dyspnoea [Fatal]
  - Myalgia [Fatal]
  - Presyncope [Fatal]
  - Blindness [Fatal]
  - Chills [Fatal]
  - Fatigue [Fatal]
  - Abdominal pain [Fatal]
  - Vomiting [Fatal]
  - Decreased appetite [Fatal]
  - Ascites [Fatal]
  - Somnolence [Fatal]
  - Somnolence [Fatal]
  - Blood pressure increased [Fatal]
  - Pruritus [Fatal]
  - Diplopia [Fatal]
  - Haematemesis [Fatal]
  - Coma [Fatal]
  - Ocular discomfort [Fatal]
  - Arthralgia [Fatal]
  - Eye pain [Fatal]
  - Head discomfort [Fatal]
  - Insomnia [Fatal]
  - Tinnitus [Fatal]
  - Amaurosis fugax [Fatal]
  - Pyrexia [Fatal]
  - Abdominal pain upper [Fatal]
  - Generalised oedema [Fatal]
  - Asthenia [Fatal]
  - Nausea [Fatal]
  - Drug interaction [Unknown]
